FAERS Safety Report 13180549 (Version 1)
Quarter: 2017Q1

REPORT INFORMATION
  Report Type: Spontaneous
  Country: FR (occurrence: FR)
  Receive Date: 20170202
  Receipt Date: 20170202
  Transmission Date: 20170428
  Serious: Yes (Other)
  Sender: FDA-Public Use
  Company Number: FR-ALLERGAN-1703529US

PATIENT
  Age: 42 Year
  Sex: Female

DRUGS (11)
  1. SILODOSIN - BP [Suspect]
     Active Substance: SILODOSIN
     Indication: PRODUCT USED FOR UNKNOWN INDICATION
     Dosage: 1 DF, QD
     Route: 048
  2. FAMPYRA [Suspect]
     Active Substance: DALFAMPRIDINE
     Indication: MULTIPLE SCLEROSIS
     Dosage: 1 DF, QD
     Route: 048
     Dates: start: 201402
  3. RIVOTRIL [Suspect]
     Active Substance: CLONAZEPAM
     Indication: PRODUCT USED FOR UNKNOWN INDICATION
     Dosage: 5 GTT, UNK
     Route: 048
  4. TETRACYCLINE HYDROCHLORIDE. [Suspect]
     Active Substance: TETRACYCLINE HYDROCHLORIDE
  5. QIZENDAY (BIOTIN) [Suspect]
     Active Substance: BIOTIN
     Indication: MULTIPLE SCLEROSIS
     Dosage: 1 DF, TID
     Route: 048
     Dates: start: 201604
  6. GABAPENTINE [Suspect]
     Active Substance: GABAPENTIN
     Indication: PRODUCT USED FOR UNKNOWN INDICATION
     Dosage: 4 DF, QD
     Route: 048
  7. BACLOFENE [Suspect]
     Active Substance: BACLOFEN
     Indication: PRODUCT USED FOR UNKNOWN INDICATION
     Dosage: 3 DF, QD
     Route: 048
  8. AVONEX [Concomitant]
     Active Substance: INTERFERON BETA-1A
     Indication: MULTIPLE SCLEROSIS
     Dosage: UNK
     Dates: start: 2008, end: 2008
  9. TYSABRI [Concomitant]
     Active Substance: NATALIZUMAB
     Indication: MULTIPLE SCLEROSIS
     Dosage: UNK
     Dates: start: 2010, end: 2010
  10. ENDOXAN [Concomitant]
     Active Substance: CYCLOPHOSPHAMIDE
     Indication: MULTIPLE SCLEROSIS
     Dosage: UNK
     Dates: start: 2013, end: 201508
  11. VESICARE [Suspect]
     Active Substance: SOLIFENACIN SUCCINATE
     Indication: PRODUCT USED FOR UNKNOWN INDICATION
     Dosage: 1 DF, QD
     Route: 048

REACTIONS (7)
  - Night sweats [Unknown]
  - Weight decreased [Unknown]
  - Basedow^s disease [Not Recovered/Not Resolved]
  - Feeling hot [Unknown]
  - Thyroxine free increased [Unknown]
  - Irritability [Unknown]
  - Blood thyroid stimulating hormone decreased [Unknown]

NARRATIVE: CASE EVENT DATE: 2016
